FAERS Safety Report 11446919 (Version 1)
Quarter: 2015Q3

REPORT INFORMATION
  Report Type: Spontaneous
  Country: US (occurrence: US)
  Receive Date: 20150831
  Receipt Date: 20150831
  Transmission Date: 20151125
  Serious: No
  Sender: FDA-Public Use
  Company Number: US-ELI_LILLY_AND_COMPANY-US200901000593

PATIENT
  Age: 43 Year
  Sex: Female

DRUGS (1)
  1. CYMBALTA [Suspect]
     Active Substance: DULOXETINE HYDROCHLORIDE
     Dosage: 20 MG, DAILY (1/D)

REACTIONS (3)
  - Eyelid oedema [Unknown]
  - Photosensitivity reaction [Unknown]
  - Cheilitis [Unknown]

NARRATIVE: CASE EVENT DATE: 200901
